FAERS Safety Report 9411558 (Version 1)
Quarter: 2013Q3

REPORT INFORMATION
  Report Type: Spontaneous
  Country: US (occurrence: None)
  Receive Date: 20130718
  Receipt Date: 20130718
  Transmission Date: 20140515
  Serious: Yes (Other)
  Sender: FDA-Public Use
  Company Number: None

PATIENT
  Age: 63 Year
  Sex: Male
  Weight: 68.04 kg

DRUGS (1)
  1. AMIODARONE [Suspect]
     Indication: CARDIAC DISORDER
     Dosage: ONE TWO TIMES DAILY, QTY 60 PER MONTH
     Dates: start: 2010

REACTIONS (1)
  - Hyperthyroidism [None]
